FAERS Safety Report 21506032 (Version 3)
Quarter: 2022Q4

REPORT INFORMATION
  Report Type: Spontaneous
  Country: RO (occurrence: None)
  Receive Date: 20221026
  Receipt Date: 20221102
  Transmission Date: 20230112
  Serious: Yes (Death)
  Sender: FDA-Public Use
  Company Number: RO-ROCHE-3205974

PATIENT
  Age: 73 Year
  Sex: Male

DRUGS (6)
  1. POLIVY [Suspect]
     Active Substance: POLATUZUMAB VEDOTIN-PIIQ
     Indication: Diffuse large B-cell lymphoma
     Route: 065
     Dates: start: 202209
  2. RITUXIMAB [Suspect]
     Active Substance: RITUXIMAB
     Indication: Diffuse large B-cell lymphoma
     Route: 065
  3. BENDAMUSTINE [Suspect]
     Active Substance: BENDAMUSTINE
     Indication: Diffuse large B-cell lymphoma
     Route: 065
  4. FENTANYL [Concomitant]
     Active Substance: FENTANYL
  5. XARELTO [Concomitant]
     Active Substance: RIVAROXABAN
  6. MORPHINE [Concomitant]
     Active Substance: MORPHINE

REACTIONS (1)
  - Blood pressure decreased [Fatal]
